FAERS Safety Report 10576757 (Version 3)
Quarter: 2014Q4

REPORT INFORMATION
  Report Type: Spontaneous
  Country: CH (occurrence: CH)
  Receive Date: 20141111
  Receipt Date: 20141224
  Transmission Date: 20150529
  Serious: Yes (Life-Threatening, Other)
  Sender: FDA-Public Use
  Company Number: CH-JNJFOC-20141105676

PATIENT
  Age: 43 Year
  Sex: Female

DRUGS (4)
  1. REMICADE [Suspect]
     Active Substance: INFLIXIMAB
     Indication: CROHN^S DISEASE
     Route: 042
     Dates: start: 20140925, end: 20140925
  2. AZATHIOPRINE. [Suspect]
     Active Substance: AZATHIOPRINE
     Indication: CROHN^S DISEASE
     Route: 065
     Dates: end: 2013
  3. REMICADE [Suspect]
     Active Substance: INFLIXIMAB
     Indication: CROHN^S DISEASE
     Route: 042
     Dates: start: 20130721, end: 2013
  4. REMICADE [Suspect]
     Active Substance: INFLIXIMAB
     Indication: CROHN^S DISEASE
     Route: 042
     Dates: start: 20140808

REACTIONS (5)
  - Drug specific antibody present [Unknown]
  - Infusion related reaction [Recovered/Resolved]
  - Cervix carcinoma [Recovered/Resolved]
  - Type III immune complex mediated reaction [Recovered/Resolved]
  - Complement factor increased [Unknown]

NARRATIVE: CASE EVENT DATE: 2013
